FAERS Safety Report 11694822 (Version 2)
Quarter: 2015Q4

REPORT INFORMATION
  Report Type: Spontaneous
  Country: US (occurrence: US)
  Receive Date: 20151103
  Receipt Date: 20151112
  Transmission Date: 20160304
  Serious: No
  Sender: FDA-Public Use
  Company Number: US-TEVA-605068ACC

PATIENT
  Age: 24 Year
  Sex: Female
  Weight: 61.29 kg

DRUGS (1)
  1. PLAN B ONE-STEP [Suspect]
     Active Substance: LEVONORGESTREL
     Indication: POST COITAL CONTRACEPTION
     Dates: start: 20151013, end: 20151013

REACTIONS (4)
  - Fatigue [Recovered/Resolved]
  - Breast pain [Recovered/Resolved]
  - Abdominal pain upper [Recovered/Resolved]
  - Menstruation irregular [Recovered/Resolved]

NARRATIVE: CASE EVENT DATE: 20151024
